FAERS Safety Report 7541522-4 (Version None)
Quarter: 2011Q2

REPORT INFORMATION
  Report Type: 
  Country: None (occurrence: None)
  Receive Date: 20110613
  Receipt Date: 20110606
  Transmission Date: 20111010
  Serious: Yes (Other)
  Sender: FDA-Public Use
  Company Number: CA-BRISTOL-MYERS SQUIBB COMPANY-15806318

PATIENT
  Age: 60 Year
  Sex: Female

DRUGS (3)
  1. FLUOROURACIL [Suspect]
     Indication: RECTOSIGMOID CANCER RECURRENT
     Dosage: DAYS 1 AND 2. CYCLE-3.
  2. CISPLATIN [Suspect]
     Indication: RECTOSIGMOID CANCER RECURRENT
     Dosage: DAY 1. CYCLE-3.
     Route: 042
  3. LEUCOVORIN CALCIUM [Suspect]
     Indication: RECTOSIGMOID CANCER RECURRENT
     Dosage: DAYS 1 AND 2. CYCLE-3.

REACTIONS (1)
  - AORTIC THROMBOSIS [None]
